FAERS Safety Report 14106661 (Version 1)
Quarter: 2017Q4

REPORT INFORMATION
  Report Type: Spontaneous
  Country: SE (occurrence: SE)
  Receive Date: 20171018
  Receipt Date: 20171018
  Transmission Date: 20180321
  Serious: Yes (Hospitalization)
  Sender: FDA-Public Use
  Company Number: SE-SA-2017SA200914

PATIENT
  Age: 26 Year
  Sex: Male

DRUGS (2)
  1. CLOMIPRAMINE [Concomitant]
     Active Substance: CLOMIPRAMINE
  2. ALLEGRA [Suspect]
     Active Substance: FEXOFENADINE HYDROCHLORIDE
     Route: 048

REACTIONS (4)
  - Cyanosis [Recovered/Resolved]
  - Muscle spasms [Recovered/Resolved]
  - Tremor [Recovered/Resolved]
  - False positive investigation result [Unknown]

NARRATIVE: CASE EVENT DATE: 20171013
